FAERS Safety Report 6618333-7 (Version None)
Quarter: 2010Q1

REPORT INFORMATION
  Report Type: 
  Country: None (occurrence: None)
  Receive Date: 20100302
  Receipt Date: 20100218
  Transmission Date: 20100710
  Serious: Yes (Other)
  Sender: FDA-Public Use
  Company Number: 234970J09USA

PATIENT
  Age: 55 Year
  Sex: Female
  Weight: 61 kg

DRUGS (10)
  1. REBIF [Suspect]
     Indication: MULTIPLE SCLEROSIS
     Dosage: 44 MCG, 3 IN 1 WEEKS, SUBCUTANEOUS; 22 MCG, 3 IN 1 WEEKS, SUBCUTANEOUS
     Route: 058
     Dates: start: 20090901, end: 20100105
  2. REBIF [Suspect]
     Indication: MULTIPLE SCLEROSIS
     Dosage: 44 MCG, 3 IN 1 WEEKS, SUBCUTANEOUS; 22 MCG, 3 IN 1 WEEKS, SUBCUTANEOUS
     Route: 058
     Dates: start: 20100105
  3. GLUCOPHAGE [Concomitant]
  4. ZANAFLEX [Concomitant]
  5. ELAVIL [Concomitant]
  6. LOPRESSOR [Concomitant]
  7. VITAMIN D [Concomitant]
  8. VITAMIN B COMPLEX (VITAMIN-B-KOMPLEX STANDARD) [Concomitant]
  9. MULTIVITAMIN [Concomitant]
  10. FIBERCON (POLYCARBOPHIL CALCIUM) [Concomitant]

REACTIONS (2)
  - DIABETIC RETINOPATHY [None]
  - RETINAL EXUDATES [None]
